FAERS Safety Report 4963777-2 (Version None)
Quarter: 2006Q1

REPORT INFORMATION
  Report Type: 
  Country: None (occurrence: None)
  Receive Date: 20060330
  Receipt Date: 20060316
  Transmission Date: 20060701
  Serious: Yes (Hospitalization)
  Sender: FDA-Public Use
  Company Number: 222897

PATIENT
  Age: 55 Year
  Sex: Female

DRUGS (5)
  1. RAPTIVA [Suspect]
     Indication: PSORIASIS
     Dates: start: 20060206
  2. VERAPAMIL [Concomitant]
  3. DIOSMIN [Concomitant]
  4. LORATADINE [Concomitant]
  5. FLUOXETINE HYDROCHLORIDE [Concomitant]

REACTIONS (6)
  - BACTERIAL INFECTION [None]
  - HEADACHE [None]
  - LUNG DISORDER [None]
  - MYALGIA [None]
  - NAUSEA [None]
  - PSORIASIS [None]
